FAERS Safety Report 6454320-X (Version None)
Quarter: 2009Q4

REPORT INFORMATION
  Report Type: 
  Country: None (occurrence: None)
  Receive Date: 20091124
  Receipt Date: 20091116
  Transmission Date: 20100525
  Serious: Yes (Hospitalization)
  Sender: FDA-Public Use
  Company Number: JP-ASTRAZENECA-2009SE23947

PATIENT
  Age: 74 Year
  Sex: Female
  Weight: 53 kg

DRUGS (17)
  1. ECARD LD [Suspect]
     Indication: HYPERTENSION
     Route: 048
     Dates: start: 20090512, end: 20090928
  2. TAKEPRON OD [Concomitant]
     Indication: REFLUX OESOPHAGITIS
     Route: 048
     Dates: start: 20060706
  3. AMLODIN OD [Concomitant]
     Indication: HYPERTENSION
     Route: 048
     Dates: start: 20061125, end: 20090731
  4. AMARYL [Concomitant]
     Indication: DIABETES MELLITUS
     Route: 048
     Dates: start: 20060613
  5. SEIBULE [Concomitant]
     Indication: DIABETES MELLITUS
     Route: 048
     Dates: start: 20070529
  6. MELBIN [Concomitant]
     Indication: DIABETES MELLITUS
     Route: 048
     Dates: start: 20070807
  7. LOCHOL [Concomitant]
     Indication: DYSLIPIDAEMIA
     Route: 048
     Dates: start: 19971212
  8. BUFFERIN [Concomitant]
     Indication: ANGINA PECTORIS
     Route: 048
     Dates: start: 19971219
  9. FRANDOL TAPE [Concomitant]
     Indication: ANGINA PECTORIS
     Route: 062
     Dates: start: 19970809
  10. MAGNESIUM OXIDE [Concomitant]
     Indication: CONSTIPATION
     Route: 048
  11. PURSENNID [Concomitant]
     Indication: CONSTIPATION
     Route: 048
  12. HALCION [Concomitant]
     Indication: INSOMNIA
     Route: 048
  13. LAC B GRANULAR POWDER N [Concomitant]
     Indication: BOWEL MOVEMENT IRREGULARITY
     Route: 048
     Dates: start: 20090713
  14. CEREKINON [Concomitant]
     Indication: BOWEL MOVEMENT IRREGULARITY
     Route: 048
     Dates: start: 20090810
  15. PEON [Concomitant]
     Indication: BACK PAIN
     Route: 048
  16. CRAVIT [Concomitant]
     Indication: URINARY TRACT INFECTION
     Route: 048
     Dates: start: 20090706, end: 20090710
  17. OZEX [Concomitant]
     Indication: URINARY TRACT INFECTION
     Route: 048
     Dates: start: 20090713, end: 20090717

REACTIONS (4)
  - CHEST DISCOMFORT [None]
  - DYSPNOEA [None]
  - HEADACHE [None]
  - HYPONATRAEMIA [None]
